FAERS Safety Report 17467228 (Version 1)
Quarter: 2020Q1

REPORT INFORMATION
  Report Type: Spontaneous
  Country: US (occurrence: US)
  Receive Date: 20200227
  Receipt Date: 20200227
  Transmission Date: 20200409
  Serious: Yes (Other)
  Sender: FDA-Public Use
  Company Number: US-PFIZER INC-2020080823

PATIENT
  Age: 32 Year
  Sex: Male
  Weight: 89.36 kg

DRUGS (6)
  1. CAVERJECT [Suspect]
     Active Substance: ALPROSTADIL
     Dosage: 2.5 IU, UNK
  2. TRIMIX (ALPROSTADIL\PAPAVERINE\PHENTOLAMINE) [Suspect]
     Active Substance: ALPROSTADIL\PAPAVERINE\PHENTOLAMINE
     Dosage: UNK
  3. CAVERJECT [Suspect]
     Active Substance: ALPROSTADIL
     Dosage: UNK
     Dates: start: 1997, end: 2018
  4. CAVERJECT [Suspect]
     Active Substance: ALPROSTADIL
     Indication: ERECTILE DYSFUNCTION
     Dosage: UNK
     Dates: start: 1987
  5. CAVERJECT [Suspect]
     Active Substance: ALPROSTADIL
     Indication: PENILE CURVATURE
     Dosage: UNK (EACH 5 UNITS EACH TIME)
  6. CAVERJECT [Suspect]
     Active Substance: ALPROSTADIL
     Dosage: 3.5 IU, UNK

REACTIONS (9)
  - Thrombosis [Recovered/Resolved]
  - Penile curvature [Unknown]
  - Contraindicated product prescribed [Unknown]
  - Off label use [Unknown]
  - Penis disorder [Unknown]
  - Peyronie^s disease [Unknown]
  - Priapism [Unknown]
  - Erection increased [Unknown]
  - Condition aggravated [Unknown]

NARRATIVE: CASE EVENT DATE: 2018
